FAERS Safety Report 6853946-9 (Version None)
Quarter: 2010Q3

REPORT INFORMATION
  Report Type: 
  Country: None (occurrence: None)
  Receive Date: 20100717
  Receipt Date: 20080208
  Transmission Date: 20110219
  Serious: No
  Sender: FDA-Public Use
  Company Number: US-PFIZER INC-2007099843

PATIENT
  Sex: Male
  Weight: 104.3 kg

DRUGS (2)
  1. CHANTIX [Suspect]
     Indication: SMOKING CESSATION THERAPY
     Dates: start: 20070901, end: 20071204
  2. ALLEGRA D 24 HOUR [Concomitant]
     Indication: SEASONAL ALLERGY

REACTIONS (4)
  - DYSGEUSIA [None]
  - HEPATIC ENZYME INCREASED [None]
  - INCORRECT DOSE ADMINISTERED [None]
  - SERUM FERRITIN INCREASED [None]
